FAERS Safety Report 8538637-0 (Version None)
Quarter: 2012Q3

REPORT INFORMATION
  Report Type: 
  Country: None (occurrence: None)
  Receive Date: 20120713
  Receipt Date: 20120709
  Transmission Date: 20120928
  Serious: Yes (Other)
  Sender: FDA-Public Use
  Company Number: GER/GER/12/0024973

PATIENT
  Age: 28 Year
  Sex: Female
  Weight: 59 kg

DRUGS (2)
  1. LAMOTRIGINE [Suspect]
     Indication: EPILEPSY
     Dosage: 275 MG, DURING FIRST TRIMESTER, ORAL; 500 MG, THROUGHOUT PREGNANCY, ORAL
     Route: 048
     Dates: end: 20110212
  2. FOLSAURE (FOLIC ACID) [Concomitant]

REACTIONS (2)
  - PREMATURE RUPTURE OF MEMBRANES [None]
  - MATERNAL EXPOSURE DURING PREGNANCY [None]
